FAERS Safety Report 11127867 (Version 2)
Quarter: 2015Q3

REPORT INFORMATION
  Report Type: Report from Study
  Country: DE (occurrence: DE)
  Receive Date: 20150521
  Receipt Date: 20150723
  Transmission Date: 20151125
  Serious: Yes (Hospitalization)
  Sender: FDA-Public Use
  Company Number: DE-BIOGENIDEC-2015BI064343

PATIENT
  Age: 53 Year
  Sex: Female

DRUGS (24)
  1. PROTAPHANE [Concomitant]
     Active Substance: INSULIN HUMAN
     Route: 058
     Dates: start: 20150501
  2. ATENOLOL. [Concomitant]
     Active Substance: ATENOLOL
  3. L-THYROXINE [Concomitant]
     Active Substance: LEVOTHYROXINE
     Indication: HYPOTHYROIDISM
  4. PANTOZOL [Concomitant]
     Active Substance: PANTOPRAZOLE SODIUM
  5. RESOLOR [Concomitant]
     Active Substance: PRUCALOPRIDE SUCCINATE
  6. DOMPERIDONE [Concomitant]
     Active Substance: DOMPERIDONE
  7. SWEATOSAH [Concomitant]
     Dates: start: 20120101
  8. ECURAL [Concomitant]
     Active Substance: MOMETASONE
     Dates: start: 20130501
  9. RAMIPRIL. [Concomitant]
     Active Substance: RAMIPRIL
     Indication: HYPERTENSION
  10. PROMAZEPIN (NOS) [Concomitant]
     Route: 048
  11. HUMALOG [Concomitant]
     Active Substance: INSULIN LISPRO
     Indication: DIABETES MELLITUS
     Route: 058
     Dates: start: 20150501
  12. SIMVASTATIN. [Concomitant]
     Active Substance: SIMVASTATIN
  13. LYRICA [Concomitant]
     Active Substance: PREGABALIN
     Indication: PAIN
  14. ASA [Concomitant]
     Active Substance: ASPIRIN
     Route: 048
     Dates: start: 20150201
  15. BETADORM [Concomitant]
     Dates: start: 20150130
  16. AVONEX [Suspect]
     Active Substance: INTERFERON BETA-1A
     Indication: MULTIPLE SCLEROSIS
     Route: 030
     Dates: start: 19980626
  17. FENTANYL. [Concomitant]
     Active Substance: FENTANYL
     Route: 062
  18. LAXATAN (NOS) [Concomitant]
     Dates: start: 20140101
  19. KELOFIBRASE [Concomitant]
     Dates: start: 20150130
  20. OXYCODONE [Concomitant]
     Active Substance: OXYCODONE
     Dates: start: 20141001
  21. SPIRIVA [Concomitant]
     Active Substance: TIOTROPIUM BROMIDE MONOHYDRATE
     Dates: start: 20141001
  22. NITROLINGUAL [Concomitant]
     Active Substance: NITROGLYCERIN
  23. SALBUTAMOL [Concomitant]
     Active Substance: ALBUTEROL
  24. DIAZEPAM. [Concomitant]
     Active Substance: DIAZEPAM
     Dates: start: 19980101

REACTIONS (3)
  - Inappropriate schedule of drug administration [Not Recovered/Not Resolved]
  - Impaired healing [Unknown]
  - Peripheral arterial occlusive disease [Recovered/Resolved]

NARRATIVE: CASE EVENT DATE: 19980626
